FAERS Safety Report 13637612 (Version 1)
Quarter: 2017Q2

REPORT INFORMATION
  Report Type: Spontaneous
  Country: US (occurrence: US)
  Receive Date: 20170608
  Receipt Date: 20170608
  Transmission Date: 20170830
  Serious: Yes (Hospitalization, Other)
  Sender: FDA-Public Use
  Company Number: None

PATIENT
  Age: 23 Year
  Sex: Female

DRUGS (1)
  1. LUPRON DEPOT [Suspect]
     Active Substance: LEUPROLIDE ACETATE
     Indication: VAGINAL HAEMORRHAGE
     Dosage: 11.25MG CORRECT: Q 12 WEEKS INTRAMUSCULARLY
     Route: 030
     Dates: start: 20161227

REACTIONS (3)
  - Agitation [None]
  - Inappropriate schedule of drug administration [None]
  - Abortion spontaneous [None]

NARRATIVE: CASE EVENT DATE: 20170601
